FAERS Safety Report 8887006 (Version 1)
Quarter: 2012Q4

REPORT INFORMATION
  Report Type: Report from Study
  Country: RU (occurrence: RU)
  Receive Date: 20121105
  Receipt Date: 20121105
  Transmission Date: 20130627
  Serious: Yes (Hospitalization)
  Sender: FDA-Public Use
  Company Number: PHHY2012RU099251

PATIENT
  Age: 42 Year
  Sex: Female

DRUGS (1)
  1. IMATINIB [Suspect]
     Dosage: 400 mg, UNK
     Route: 048
     Dates: start: 20060214

REACTIONS (6)
  - Red blood cell count decreased [Unknown]
  - Anaemia [Recovered/Resolved]
  - Haemoglobin decreased [Unknown]
  - Platelet count decreased [Unknown]
  - Lymphocyte count decreased [Unknown]
  - White blood cell count decreased [Unknown]
